FAERS Safety Report 8353638-3 (Version None)
Quarter: 2012Q2

REPORT INFORMATION
  Report Type: 
  Country: None (occurrence: None)
  Receive Date: 20120511
  Receipt Date: 20120504
  Transmission Date: 20120825
  Serious: Yes (Hospitalization)
  Sender: FDA-Public Use
  Company Number: US-ASTRAZENECA-2012SE29153

PATIENT
  Age: 73 Year
  Sex: Female

DRUGS (2)
  1. INTEGRILIN [Concomitant]
  2. BRILINTA [Suspect]
     Indication: ANTICOAGULANT THERAPY
     Route: 048
     Dates: start: 20120427

REACTIONS (1)
  - THROMBOSIS IN DEVICE [None]
